FAERS Safety Report 16139494 (Version 1)
Quarter: 2019Q2

REPORT INFORMATION
  Report Type: Spontaneous
  Country: US (occurrence: US)
  Receive Date: 20190329
  Receipt Date: 20190329
  Transmission Date: 20190711
  Serious: Yes (Disabling)
  Sender: FDA-Public Use
  Company Number: None

PATIENT
  Age: 56 Year
  Sex: Female
  Weight: 78.75 kg

DRUGS (5)
  1. XANAX [Concomitant]
     Active Substance: ALPRAZOLAM
  2. VITAMIN D NOS [Concomitant]
     Active Substance: VITAMIN D NOS
  3. METROPOLOL [Suspect]
     Active Substance: METOPROLOL
     Indication: TACHYCARDIA
     Dosage: ?          QUANTITY:1 TABLET(S);?
     Route: 048
     Dates: start: 20170329, end: 20190322
  4. MOTRIN [Concomitant]
     Active Substance: IBUPROFEN
  5. PROVASTATIN [Concomitant]

REACTIONS (5)
  - Taste disorder [None]
  - Rash follicular [None]
  - Decreased appetite [None]
  - Depression [None]
  - Insomnia [None]

NARRATIVE: CASE EVENT DATE: 20190323
